FAERS Safety Report 16730959 (Version 1)
Quarter: 2019Q3

REPORT INFORMATION
  Report Type: Report from Study
  Country: US (occurrence: US)
  Receive Date: 20190822
  Receipt Date: 20190822
  Transmission Date: 20191005
  Serious: Yes (Other)
  Sender: FDA-Public Use
  Company Number: US-TESARO-2019-TSO02080-US

PATIENT
  Age: 80 Year
  Sex: Female

DRUGS (7)
  1. METOPROLOL SUCCINATE. [Concomitant]
     Active Substance: METOPROLOL SUCCINATE
     Indication: PRODUCT USED FOR UNKNOWN INDICATION
     Dosage: UNK
  2. FELODIPINE. [Concomitant]
     Active Substance: FELODIPINE
     Indication: PRODUCT USED FOR UNKNOWN INDICATION
     Dosage: UNK
  3. LEVOTHYROXINE. [Concomitant]
     Active Substance: LEVOTHYROXINE
     Indication: PRODUCT USED FOR UNKNOWN INDICATION
     Dosage: UNK
  4. RALOXIFENE HYDROCHLORIDE. [Concomitant]
     Active Substance: RALOXIFENE HYDROCHLORIDE
     Indication: PRODUCT USED FOR UNKNOWN INDICATION
     Dosage: UNK
  5. ZEJULA [Suspect]
     Active Substance: NIRAPARIB
     Indication: OVARIAN CANCER
     Dosage: 100 MG, QD (1 CAPSULE)
     Route: 048
     Dates: start: 20190516
  6. ZEJULA [Suspect]
     Active Substance: NIRAPARIB
     Dosage: 200 MG, QD
     Route: 048
  7. LISINOPRIL                         /00894002/ [Concomitant]
     Active Substance: LISINOPRIL
     Indication: PRODUCT USED FOR UNKNOWN INDICATION
     Dosage: UNK

REACTIONS (17)
  - Body temperature increased [Unknown]
  - Depressed mood [Unknown]
  - Product dose omission [Unknown]
  - Platelet count decreased [Unknown]
  - Rhinorrhoea [Unknown]
  - Glomerular filtration rate decreased [Unknown]
  - Constipation [Unknown]
  - Underdose [Unknown]
  - Angioedema [Recovering/Resolving]
  - Oropharyngeal pain [Not Recovered/Not Resolved]
  - Tumour marker increased [Unknown]
  - Eustachian tube disorder [Unknown]
  - Blood creatinine increased [Unknown]
  - Carbohydrate antigen 125 increased [Unknown]
  - Fatigue [Unknown]
  - Lymphadenopathy [Unknown]
  - Haemoglobin decreased [Unknown]

NARRATIVE: CASE EVENT DATE: 20190813
